FAERS Safety Report 11089839 (Version 1)
Quarter: 2015Q2

REPORT INFORMATION
  Report Type: Spontaneous
  Country: JP (occurrence: JP)
  Receive Date: 20150505
  Receipt Date: 20150505
  Transmission Date: 20150821
  Serious: Yes (Death, Other)
  Sender: FDA-Public Use
  Company Number: JP-TEVA-559688ISR

PATIENT
  Age: 64 Year
  Sex: Male

DRUGS (3)
  1. CARBOPLATIN. [Suspect]
     Active Substance: CARBOPLATIN
     Indication: LUNG ADENOCARCINOMA STAGE III
     Dosage: AREA UNDER THE CURVE FROM PHARMACOKINETIC MEASUREMENT WAS 5
     Route: 065
  2. MIGLITOL. [Suspect]
     Active Substance: MIGLITOL
     Indication: HYPERGLYCAEMIA
     Dosage: 150 MILLIGRAM DAILY;
     Route: 065
  3. PEMETREXED [Suspect]
     Active Substance: PEMETREXED
     Indication: LUNG ADENOCARCINOMA STAGE III
     Dosage: 500 MG/M 2
     Route: 065

REACTIONS (4)
  - Sepsis [Fatal]
  - Portal venous gas [Recovering/Resolving]
  - Gastrointestinal necrosis [Not Recovered/Not Resolved]
  - Multi-organ failure [Fatal]
